FAERS Safety Report 4803256-6 (Version None)
Quarter: 2005Q4

REPORT INFORMATION
  Report Type: 
  Country: None (occurrence: None)
  Receive Date: 20051013
  Receipt Date: 20050928
  Transmission Date: 20060501
  Serious: Yes (Hospitalization)
  Sender: FDA-Public Use
  Company Number: USA050699603

PATIENT
  Age: 41 Year
  Sex: Female
  Weight: 82 kg

DRUGS (6)
  1. CYMBALTA [Suspect]
     Indication: DEPRESSION
     Dosage: 60 MG DAY
     Dates: start: 20050210, end: 20050501
  2. CYMBALTA [Suspect]
     Indication: MAJOR DEPRESSION
     Dosage: 60 MG DAY
     Dates: start: 20050210, end: 20050501
  3. WELLBUTRIN [Concomitant]
  4. AMBIEN [Concomitant]
  5. MIDRIN [Concomitant]
  6. MOTRIN [Concomitant]

REACTIONS (2)
  - HEADACHE [None]
  - MULTIPLE SCLEROSIS [None]
